FAERS Safety Report 15393620 (Version 1)
Quarter: 2018Q3

REPORT INFORMATION
  Report Type: Spontaneous
  Country: GB (occurrence: GB)
  Receive Date: 20180917
  Receipt Date: 20180917
  Transmission Date: 20181010
  Serious: Yes (Life-Threatening)
  Sender: FDA-Public Use
  Company Number: GB-B.I. PHARMACEUTICALS,INC./RIDGEFIELD-2018-12-003117

PATIENT
  Age: 31 Year
  Sex: Male

DRUGS (6)
  1. CLONIDINE. [Suspect]
     Active Substance: CLONIDINE
     Indication: SEDATION
     Dosage: BETWEEN 2?7ML/HR, FORM: 124
     Route: 042
     Dates: start: 20180823, end: 20180826
  2. PROPOFOL. [Concomitant]
     Active Substance: PROPOFOL
     Indication: SEDATION
     Dosage: 0?8ML/HR
     Route: 042
     Dates: start: 20180820
  3. NOREPINEPHRINE. [Concomitant]
     Active Substance: NOREPINEPHRINE
     Indication: BLOOD PRESSURE MEASUREMENT
     Dosage: 2.5?16ML/HR
     Route: 042
     Dates: start: 20180820
  4. ALFENTANIL. [Concomitant]
     Active Substance: ALFENTANIL
     Indication: ANALGESIC THERAPY
     Dosage: 3?9ML/HR
     Route: 042
     Dates: start: 20180820
  5. DALTEPARIN [Concomitant]
     Active Substance: DALTEPARIN
     Indication: THROMBOSIS PROPHYLAXIS
     Route: 058
     Dates: start: 20180814
  6. PANTOPRAZOLE [Concomitant]
     Active Substance: PANTOPRAZOLE
     Indication: PROPHYLAXIS
     Route: 042
     Dates: start: 20180820

REACTIONS (3)
  - Cardiac arrest [Recovered/Resolved]
  - Bradycardia [Recovered/Resolved]
  - Hypotension [Recovered/Resolved]

NARRATIVE: CASE EVENT DATE: 20180824
